FAERS Safety Report 9062968 (Version 1)
Quarter: 2013Q1

REPORT INFORMATION
  Report Type: Report from Study
  Country: US (occurrence: US)
  Receive Date: 20130129
  Receipt Date: 20130129
  Transmission Date: 20140127
  Serious: Yes (Other)
  Sender: FDA-Public Use
  Company Number: US-ABBOTT-12P-163-0947910-00

PATIENT
  Age: 51 Year
  Sex: Female

DRUGS (8)
  1. HUMIRA 40 MG/0.8 ML PEN [Suspect]
     Indication: PSORIATIC ARTHROPATHY
     Dates: start: 201205
  2. VITAMIN D [Concomitant]
     Indication: PRODUCT USED FOR UNKNOWN INDICATION
  3. MULTIVITAMINS [Concomitant]
     Indication: PRODUCT USED FOR UNKNOWN INDICATION
  4. CALCIUM+MAGNESIUM [Concomitant]
     Indication: PRODUCT USED FOR UNKNOWN INDICATION
  5. REGENERIST EYE GTTS [Concomitant]
     Indication: DRY EYE
     Dosage: TO BOTH
  6. ZOLOFT [Concomitant]
     Indication: DEPRESSION
     Dosage: 100 MG DAILY
  7. ASA [Concomitant]
     Indication: PROPHYLAXIS
     Dosage: 325 MG DAILY
  8. SINGULAR [Concomitant]
     Indication: CHRONIC SINUSITIS
     Dosage: 5 MG DAILY

REACTIONS (7)
  - Surgery [Unknown]
  - Impaired healing [Unknown]
  - Localised infection [Unknown]
  - Local swelling [Unknown]
  - Feeling hot [Unknown]
  - Skin induration [Unknown]
  - Injection site haemorrhage [Unknown]
